FAERS Safety Report 24331858 (Version 1)
Quarter: 2024Q3

REPORT INFORMATION
  Report Type: Spontaneous
  Country: US (occurrence: US)
  Receive Date: 20240918
  Receipt Date: 20240918
  Transmission Date: 20241016
  Serious: Yes (Other)
  Sender: BECTON DICKINSON
  Company Number: US-BECTON DICKINSON-US-BD-24-000528

PATIENT
  Age: 51 Year
  Sex: Male

DRUGS (1)
  1. CHLORAPREP [Suspect]
     Active Substance: CHLORHEXIDINE GLUCONATE\ISOPROPYL ALCOHOL
     Indication: Infection prophylaxis
     Dosage: 2 APPLICATORS
     Route: 061
     Dates: start: 20221018, end: 20221018

REACTIONS (2)
  - Cutibacterium acnes infection [Recovered/Resolved]
  - Staphylococcal infection [Recovered/Resolved]
